FAERS Safety Report 25154662 (Version 1)
Quarter: 2025Q2

REPORT INFORMATION
  Report Type: Spontaneous
  Country: US (occurrence: None)
  Receive Date: 20250402
  Receipt Date: 20250402
  Transmission Date: 20250717
  Serious: Yes (Hospitalization)
  Sender: FDA-CTU
  Company Number: None

PATIENT
  Sex: Female

DRUGS (3)
  1. BENLYSTA [Suspect]
     Active Substance: BELIMUMAB
     Indication: Systemic lupus erythematosus
     Dosage: FREQUENCY : WEEKLY;?
     Route: 058
     Dates: start: 20240911
  2. DULOXETINE [Concomitant]
     Active Substance: DULOXETINE
  3. IRON [Concomitant]
     Active Substance: IRON

REACTIONS (3)
  - Drug ineffective [None]
  - Impaired quality of life [None]
  - Nephrolithiasis [None]
